FAERS Safety Report 14427168 (Version 2)
Quarter: 2019Q1

REPORT INFORMATION
  Report Type: Spontaneous
  Country: US (occurrence: US)
  Receive Date: 20180123
  Receipt Date: 20190303
  Transmission Date: 20190417
  Serious: No
  Sender: FDA-Public Use
  Company Number: US-IMPAX LABORATORIES, INC-2017-IPXL-03510

PATIENT
  Age: 81 Year
  Sex: Male

DRUGS (2)
  1. STALEVO [Concomitant]
     Active Substance: CARBIDOPA\ENTACAPONE\LEVODOPA
     Indication: PRODUCT USED FOR UNKNOWN INDICATION
     Dosage: UNK, 2 /DAY
     Route: 065
  2. RYTARY [Suspect]
     Active Substance: CARBIDOPA\LEVODOPA
     Indication: PRODUCT USED FOR UNKNOWN INDICATION
     Dosage: 23.75/95 MG, 2 CAPSULES 4 /DAY
     Route: 065

REACTIONS (3)
  - Intentional product use issue [Unknown]
  - Paraesthesia oral [Recovered/Resolved]
  - Somnolence [Recovered/Resolved]
